FAERS Safety Report 6069976-3 (Version None)
Quarter: 2009Q1

REPORT INFORMATION
  Report Type: 
  Country: None (occurrence: None)
  Receive Date: 20090209
  Receipt Date: 20090126
  Transmission Date: 20090719
  Serious: Yes (Other)
  Sender: FDA-Public Use
  Company Number: PHHY2009CA02659

PATIENT

DRUGS (6)
  1. DIOVAN [Suspect]
     Indication: HYPERTENSION
     Route: 048
  2. DIOVAN HCT [Suspect]
     Dosage: 160 MG VALSARTAN/12.5 MG HYDROCHLOROTHIAZIDE
  3. BETA BLOCKING AGENTS [Concomitant]
     Dosage: UNK
  4. ACE INHIBITOR NOS [Concomitant]
     Dosage: UNK
  5. ASPIRIN [Concomitant]
     Dosage: 81 MG, ONCE/SINGLE
     Dates: start: 20040101
  6. LIPITOR [Concomitant]
     Dosage: 10 MG, UNK
     Dates: start: 20060301

REACTIONS (6)
  - ANGINA PECTORIS [None]
  - CORONARY ARTERY OCCLUSION [None]
  - EJECTION FRACTION DECREASED [None]
  - MYOCARDIAL INFARCTION [None]
  - MYOCARDIAL ISCHAEMIA [None]
  - STENT PLACEMENT [None]
